FAERS Safety Report 4395959-5 (Version None)
Quarter: 2004Q3

REPORT INFORMATION
  Report Type: 
  Country: None (occurrence: None)
  Receive Date: 20040707
  Receipt Date: 20040623
  Transmission Date: 20050211
  Serious: Yes (Hospitalization)
  Sender: FDA-Public Use
  Company Number: 04P-087-0256908-00

PATIENT
  Age: 66 Year
  Sex: Male

DRUGS (6)
  1. TRICOR [Suspect]
     Indication: HYPERLIPIDAEMIA
     Dosage: 150 MG, 2 IN 1 D, ORAL
     Route: 048
     Dates: start: 20040305, end: 20040323
  2. DONEPEZIL HCL [Concomitant]
  3. AMLODIPINE BESYLATE [Concomitant]
  4. HALOPERIDOL [Concomitant]
  5. SENNA LEAF [Concomitant]
  6. BROTIZOLAM [Concomitant]

REACTIONS (6)
  - ECZEMA [None]
  - HEPATIC FUNCTION ABNORMAL [None]
  - LIVER DISORDER [None]
  - PRURITUS [None]
  - PYREXIA [None]
  - RASH GENERALISED [None]
